FAERS Safety Report 10614864 (Version 3)
Quarter: 2014Q4

REPORT INFORMATION
  Report Type: Spontaneous
  Country: US (occurrence: US)
  Receive Date: 20141201
  Receipt Date: 20141204
  Transmission Date: 20150529
  Serious: Yes (Hospitalization)
  Sender: FDA-Public Use
  Company Number: US-BRISTOL-MYERS SQUIBB COMPANY-21459144

PATIENT
  Age: 72 Year
  Sex: Female

DRUGS (2)
  1. SPRYCEL [Suspect]
     Active Substance: DASATINIB
     Indication: CHRONIC MYELOID LEUKAEMIA
     Dosage: 70 MG
     Route: 048
     Dates: start: 201406
  2. CITALOPRAM [Concomitant]
     Active Substance: CITALOPRAM HYDROBROMIDE
     Dates: start: 20140430

REACTIONS (3)
  - Cardiac disorder [Unknown]
  - Dyspnoea [Unknown]
  - Procedural pain [Unknown]

NARRATIVE: CASE EVENT DATE: 2014
